FAERS Safety Report 23763614 (Version 1)
Quarter: 2024Q2

REPORT INFORMATION
  Report Type: Spontaneous
  Country: US (occurrence: None)
  Receive Date: 20240419
  Receipt Date: 20240419
  Transmission Date: 20240716
  Serious: Yes (Hospitalization)
  Sender: FDA-Public Use
  Company Number: None

PATIENT
  Age: 50 Year
  Sex: Female
  Weight: 121.23 kg

DRUGS (1)
  1. SPRAVATO [Suspect]
     Active Substance: ESKETAMINE
     Indication: Major depression
     Dosage: 84 MG WEEILY NASAL?
     Route: 045
     Dates: start: 20240409, end: 20240418

REACTIONS (2)
  - Dissociation [None]
  - Seizure [None]

NARRATIVE: CASE EVENT DATE: 20240419
